FAERS Safety Report 10460979 (Version 1)
Quarter: 2014Q2

REPORT INFORMATION
  Report Type: Spontaneous
  Country: US (occurrence: None)
  Receive Date: 20140505
  Receipt Date: 20140505
  Transmission Date: 20141212
  Serious: Yes (Other)
  Sender: FDA-Public Use
  Company Number: US-BIOTEST-T 264/14

PATIENT
  Age: 20 Year
  Sex: Female

DRUGS (1)
  1. BIVIGAM [Suspect]
     Indication: IMMUNODEFICIENCY
     Route: 041
     Dates: start: 20131028, end: 20131028

REACTIONS (4)
  - Product quality issue [None]
  - Migraine [None]
  - Headache [None]
  - Fatigue [None]
